FAERS Safety Report 5903980-8 (Version None)
Quarter: 2008Q3

REPORT INFORMATION
  Report Type: 
  Country: None (occurrence: None)
  Receive Date: 20080930
  Receipt Date: 20080925
  Transmission Date: 20090109
  Serious: Yes (Other)
  Sender: FDA-Public Use
  Company Number: GB-MERCK-0808GBR00068

PATIENT
  Age: 64 Year
  Sex: Female

DRUGS (3)
  1. FOSAMAX [Concomitant]
     Indication: BONE DENSITY DECREASED
     Route: 048
     Dates: start: 20060101, end: 20080101
  2. FOSAMAX [Concomitant]
     Indication: IMPACTED FRACTURE
     Route: 048
     Dates: start: 20060101, end: 20080101
  3. FOSAMAX [Suspect]
     Route: 048
     Dates: start: 20080101, end: 20080101

REACTIONS (3)
  - DYSPEPSIA [None]
  - MALAISE [None]
  - THERAPEUTIC RESPONSE UNEXPECTED WITH DRUG SUBSTITUTION [None]
